FAERS Safety Report 9144422 (Version 1)
Quarter: 2013Q1

REPORT INFORMATION
  Report Type: Spontaneous
  Country: US (occurrence: US)
  Receive Date: 20130306
  Receipt Date: 20130306
  Transmission Date: 20140127
  Serious: Yes (Life-Threatening, Other)
  Sender: FDA-Public Use
  Company Number: US-ROXANE LABORATORIES, INC.-2013-RO-00326RO

PATIENT
  Age: 44 Year
  Sex: Female

DRUGS (3)
  1. CALCIUM CARBONATE [Suspect]
     Indication: PROPHYLAXIS
     Dosage: 2000 MG
     Route: 048
  2. ORTHOTRICYCLEN [Suspect]
     Indication: MENORRHAGIA
  3. PROVERA [Suspect]
     Indication: MENORRHAGIA
     Dosage: 10 MG

REACTIONS (2)
  - Ovarian epithelial cancer [Recovered/Resolved]
  - Hypercalcaemia of malignancy [Recovered/Resolved]
